FAERS Safety Report 16761482 (Version 3)
Quarter: 2020Q4

REPORT INFORMATION
  Report Type: Spontaneous
  Country: US (occurrence: US)
  Receive Date: 20190830
  Receipt Date: 20201211
  Transmission Date: 20210113
  Serious: Yes (Other)
  Sender: FDA-Public Use
  Company Number: US-GILEAD-2019-0425682

PATIENT
  Sex: Male
  Weight: 74.83 kg

DRUGS (52)
  1. MELOXICAM. [Concomitant]
     Active Substance: MELOXICAM
  2. DULERA [Concomitant]
     Active Substance: FORMOTEROL FUMARATE DIHYDRATE\MOMETASONE FUROATE
  3. CIPROFLOXACIN HCL [Concomitant]
     Active Substance: CIPROFLOXACIN HYDROCHLORIDE
  4. TRUVADA [Suspect]
     Active Substance: EMTRICITABINE\TENOFOVIR DISOPROXIL FUMARATE
     Indication: HIV INFECTION
     Dosage: UNK
     Route: 048
     Dates: start: 20090702, end: 201502
  5. SYMTUZA [Concomitant]
     Active Substance: COBICISTAT\DARUNAVIR\EMTRICITABINE\TENOFOVIR ALAFENAMIDE
     Dosage: UNK
     Dates: start: 201912
  6. TRIUMEQ [Concomitant]
     Active Substance: ABACAVIR SULFATE\DOLUTEGRAVIR SODIUM\LAMIVUDINE
     Dosage: UNK
     Dates: start: 201912
  7. VIDEX [Concomitant]
     Active Substance: DIDANOSINE
  8. MONTELUKAST SODIUM. [Concomitant]
     Active Substance: MONTELUKAST SODIUM
  9. ZOLPIDEM [Concomitant]
     Active Substance: ZOLPIDEM TARTRATE
  10. LEVOFLOXACIN. [Concomitant]
     Active Substance: LEVOFLOXACIN
  11. ECONAZOLE NITRATE. [Concomitant]
     Active Substance: ECONAZOLE NITRATE
  12. CYCLOBENZAPRINE HCL [Concomitant]
     Active Substance: CYCLOBENZAPRINE HYDROCHLORIDE
  13. ONDASETRON [ONDANSETRON] [Concomitant]
  14. CLARITROMYCINE [Concomitant]
     Active Substance: CLARITHROMYCIN
  15. ONDASETRON [ONDANSETRON] [Concomitant]
  16. TOBRADEX [Concomitant]
     Active Substance: DEXAMETHASONE\TOBRAMYCIN
  17. NEOMYCINE [NEOMYCIN] [Concomitant]
     Active Substance: NEOMYCIN
  18. CEPHALEXINE [Concomitant]
     Active Substance: CEPHALEXIN
  19. CYANOCOBALAMIN. [Concomitant]
     Active Substance: CYANOCOBALAMIN
  20. VENTOLIN HFA [Concomitant]
     Active Substance: ALBUTEROL SULFATE
  21. KEFLEX [Concomitant]
     Active Substance: CEPHALEXIN
  22. METRONIDAZOLE. [Concomitant]
     Active Substance: METRONIDAZOLE
  23. ANDROGEL [Concomitant]
     Active Substance: TESTOSTERONE
  24. TAMIFLU [Concomitant]
     Active Substance: OSELTAMIVIR PHOSPHATE
  25. LOSARTAN AND HYDROCHLOROTHIAZIDE [Concomitant]
     Active Substance: HYDROCHLOROTHIAZIDE\LOSARTAN POTASSIUM
  26. VIREAD [Suspect]
     Active Substance: TENOFOVIR DISOPROXIL FUMARATE
     Indication: PRODUCT USED FOR UNKNOWN INDICATION
     Dosage: UNK
     Route: 048
  27. ISENTRESS [Concomitant]
     Active Substance: RALTEGRAVIR POTASSIUM
  28. ZIAGEN [Concomitant]
     Active Substance: ABACAVIR SULFATE
  29. SINGULAIR [Concomitant]
     Active Substance: MONTELUKAST SODIUM
     Dosage: UNK
     Dates: start: 2017
  30. TEMAZEPAM. [Concomitant]
     Active Substance: TEMAZEPAM
  31. SULFAMETHOXAZOLE AND TRIMETHOPRIM [Concomitant]
     Active Substance: SULFAMETHOXAZOLE\TRIMETHOPRIM
  32. CLINDACINE [CLINDAMYCIN] [Concomitant]
  33. ZENATANE [Concomitant]
     Active Substance: ISOTRETINOIN
  34. FLUCELVAX NOS [Concomitant]
     Active Substance: INFLUENZA A VIRUS A/BRISBANE/10/2010 (H1N1) ANTIGEN (MDCK CELL DERIVED, PROPIOLACTONE INACTIVATED)\INFLUENZA A VIRUS A/VICTORIA/361/2011 IVR-165 (H3N2) ANTIGEN (MDCK CELL DERIVED, PROPIOLACTONE INACTIVATED)\INFLUENZA B VIRUS B/WISCONSIN/1/2010) ANTIGEN (MDCK CELL DERIVED, PROPIOLACTONE INACTIVATED)
  35. ORPHENADRINE [Concomitant]
     Active Substance: ORPHENADRINE
  36. CHANTIX [Concomitant]
     Active Substance: VARENICLINE TARTRATE
  37. TYLENOL [Concomitant]
     Active Substance: ACETAMINOPHEN
  38. DOCUSATE SODIUM. [Concomitant]
     Active Substance: DOCUSATE SODIUM
  39. NYSTATIN. [Concomitant]
     Active Substance: NYSTATIN
  40. AZITHROMYCIN ANHYDROUS. [Concomitant]
     Active Substance: AZITHROMYCIN ANHYDROUS
  41. REYATAZ [Concomitant]
     Active Substance: ATAZANAVIR SULFATE
     Dosage: UNK
     Dates: start: 201306
  42. OXYCODONE AND ACETAMINOPHEN [Concomitant]
     Active Substance: ACETAMINOPHEN\OXYCODONE HYDROCHLORIDE
  43. CIPRODEX [Concomitant]
     Active Substance: CIPROFLOXACIN HYDROCHLORIDE\DEXAMETHASONE
  44. LISINOPRIL. [Concomitant]
     Active Substance: LISINOPRIL
  45. CARISOPRODOL. [Concomitant]
     Active Substance: CARISOPRODOL
  46. TESTOSTERONE. [Concomitant]
     Active Substance: TESTOSTERONE
  47. TESTOSTERON [TESTOSTERONE] [Concomitant]
  48. LIDOCAINE AND PRILOCAINE [Concomitant]
     Active Substance: LIDOCAINE\PRILOCAINE
  49. PROAIR HFA [Concomitant]
     Active Substance: ALBUTEROL SULFATE
  50. CHERATUSSIN AC [Concomitant]
     Active Substance: CODEINE PHOSPHATE\GUAIFENESIN
  51. BETAMETHASONE. [Concomitant]
     Active Substance: BETAMETHASONE
  52. SUPREP BOWEL PREP [Concomitant]
     Active Substance: MAGNESIUM SULFATE\POTASSIUM SULFATE\SODIUM SULFATE

REACTIONS (7)
  - Anhedonia [Not Recovered/Not Resolved]
  - Economic problem [Not Recovered/Not Resolved]
  - Emotional distress [Not Recovered/Not Resolved]
  - Pain [Not Recovered/Not Resolved]
  - Anxiety [Not Recovered/Not Resolved]
  - Multiple injuries [Unknown]
  - Chronic kidney disease [Not Recovered/Not Resolved]

NARRATIVE: CASE EVENT DATE: 2015
